FAERS Safety Report 9381676 (Version 1)
Quarter: 2013Q3

REPORT INFORMATION
  Report Type: Report from Study
  Country: AZ (occurrence: AZ)
  Receive Date: 20130703
  Receipt Date: 20130703
  Transmission Date: 20140515
  Serious: Yes (Other)
  Sender: FDA-Public Use
  Company Number: PHHY2013AZ067984

PATIENT
  Age: 56 Year
  Sex: Male

DRUGS (2)
  1. GLIVEC [Suspect]
     Indication: CHRONIC MYELOID LEUKAEMIA
     Dosage: 400 MG, QD
  2. GLIVEC [Suspect]
     Dosage: 600 MG, QD
     Route: 048

REACTIONS (4)
  - Terminal state [Not Recovered/Not Resolved]
  - Renal failure chronic [Not Recovered/Not Resolved]
  - Blast crisis in myelogenous leukaemia [Not Recovered/Not Resolved]
  - Chronic myeloid leukaemia transformation [Unknown]
